FAERS Safety Report 24943115 (Version 1)
Quarter: 2025Q1

REPORT INFORMATION
  Report Type: Report from Study
  Country: IT (occurrence: IT)
  Receive Date: 20250207
  Receipt Date: 20250207
  Transmission Date: 20250409
  Serious: No
  Sender: UCB
  Company Number: IT-UCBSA-2025007355

PATIENT

DRUGS (1)
  1. ZILUCOPLAN [Suspect]
     Active Substance: ZILUCOPLAN
     Indication: Product used for unknown indication
     Dates: start: 20241001

REACTIONS (2)
  - Needle issue [Unknown]
  - Product use issue [Unknown]
